FAERS Safety Report 18116842 (Version 1)
Quarter: 2020Q3

REPORT INFORMATION
  Report Type: Spontaneous
  Country: HR (occurrence: HR)
  Receive Date: 20200806
  Receipt Date: 20200806
  Transmission Date: 20201103
  Serious: Yes (Other)
  Sender: FDA-Public Use
  Company Number: HR-TEVA-2020-HR-1809438

PATIENT
  Age: 41 Year
  Sex: Male

DRUGS (2)
  1. ALVENTA [Suspect]
     Active Substance: VENLAFAXINE HYDROCHLORIDE
     Dosage: 1 DF = 1 BLISTER PACK, UNIT DOSE: 1 DF
     Route: 048
     Dates: start: 2020, end: 2020
  2. OXAZEPAM. [Suspect]
     Active Substance: OXAZEPAM
     Dosage: DF = 1 BLISTER PACK, UNIT DOSE: 1 DF
     Route: 048
     Dates: start: 2020, end: 2020

REACTIONS (7)
  - Loss of consciousness [Unknown]
  - Foaming at mouth [Unknown]
  - Blood creatine phosphokinase increased [Unknown]
  - Somnolence [Unknown]
  - Intentional overdose [Unknown]
  - Suicide attempt [Unknown]
  - Mydriasis [Unknown]

NARRATIVE: CASE EVENT DATE: 202004
